FAERS Safety Report 5672284-3 (Version None)
Quarter: 2008Q2

REPORT INFORMATION
  Report Type: 
  Country: None (occurrence: None)
  Receive Date: 20080219
  Receipt Date: 20071211
  Transmission Date: 20081010
  Serious: No
  Sender: FDA-Public Use
  Company Number: TPA2007A02486

PATIENT
  Age: 51 Year
  Sex: Female
  Weight: 80.2867 kg

DRUGS (3)
  1. ROZEREM [Suspect]
     Indication: INSOMNIA
     Dosage: 8 MG, QHS, PER ORAL
     Route: 048
     Dates: start: 20071210
  2. CYMBALTA [Concomitant]
  3. LITHOBID [Concomitant]

REACTIONS (2)
  - INITIAL INSOMNIA [None]
  - POOR QUALITY SLEEP [None]
